FAERS Safety Report 6018474-1 (Version None)
Quarter: 2008Q4

REPORT INFORMATION
  Report Type: 
  Country: None (occurrence: None)
  Receive Date: 20081223
  Receipt Date: 20081212
  Transmission Date: 20090506
  Serious: Yes (Other)
  Sender: FDA-Public Use
  Company Number: US-JNJFOC-20060906236

PATIENT
  Sex: Female
  Weight: 97.98 kg

DRUGS (5)
  1. RISPERDAL [Suspect]
     Indication: SCHIZOAFFECTIVE DISORDER
  2. RISPERDAL [Suspect]
     Indication: NIGHTMARE
  3. RISPERDAL [Suspect]
     Indication: SLEEP DISORDER THERAPY
  4. RISPERDAL [Suspect]
     Indication: DEPRESSION
  5. LEXAPRO [Concomitant]

REACTIONS (1)
  - DIABETES MELLITUS [None]
